FAERS Safety Report 4958377-4 (Version None)
Quarter: 2006Q1

REPORT INFORMATION
  Report Type: 
  Country: None (occurrence: None)
  Receive Date: 20060329
  Receipt Date: 20060329
  Transmission Date: 20060701
  Serious: Yes (Other)
  Sender: FDA-Public Use
  Company Number: None

PATIENT
  Age: 50 Year
  Sex: Male
  Weight: 102.0593 kg

DRUGS (2)
  1. REBETRON       SCHERING [Suspect]
     Indication: HEPATITIS C
  2. REBETRON       SCHERING [Suspect]
     Indication: HEPATITIS C

REACTIONS (2)
  - IRRITABLE BOWEL SYNDROME [None]
  - VISUAL ACUITY REDUCED [None]
